FAERS Safety Report 11836666 (Version 2)
Quarter: 2015Q4

REPORT INFORMATION
  Report Type: Spontaneous
  Country: US (occurrence: US)
  Receive Date: 20151215
  Receipt Date: 20151215
  Transmission Date: 20160305
  Serious: No
  Sender: FDA-Public Use
  Company Number: US-TORRENT-00001042

PATIENT
  Sex: Male

DRUGS (1)
  1. LOSARTAN POTASSIUM (50 MG) + HCTZ (12.5 MG) [Suspect]
     Active Substance: HYDROCHLOROTHIAZIDE\LOSARTAN POTASSIUM
     Indication: HYPERTENSION

REACTIONS (1)
  - Drug ineffective [Unknown]
